FAERS Safety Report 5927197-6 (Version None)
Quarter: 2008Q4

REPORT INFORMATION
  Report Type: 
  Country: None (occurrence: None)
  Receive Date: 20081022
  Receipt Date: 20081010
  Transmission Date: 20090506
  Serious: Yes (Hospitalization, Other)
  Sender: FDA-Public Use
  Company Number: GB-PFIZER INC-2008079727

PATIENT
  Age: 80 Year
  Sex: Male

DRUGS (1)
  1. DETRUSITOL XL [Suspect]
     Route: 048
     Dates: start: 20070423

REACTIONS (4)
  - CONVULSION [None]
  - GAIT DISTURBANCE [None]
  - MEDICATION ERROR [None]
  - PERIPHERAL COLDNESS [None]
